FAERS Safety Report 5014175-7 (Version None)
Quarter: 2006Q2

REPORT INFORMATION
  Report Type: 
  Country: None (occurrence: None)
  Receive Date: 20060414
  Receipt Date: 20060109
  Transmission Date: 20061013
  Serious: No
  Sender: FDA-Public Use
  Company Number: 2006SP000122

PATIENT
  Age: 77 Year
  Sex: Male
  Weight: 68.0396 kg

DRUGS (8)
  1. LUNESTA [Suspect]
     Indication: INSOMNIA
     Dosage: 1 MG;1X;ORAL
     Route: 048
     Dates: start: 20060103, end: 20060103
  2. WARFARIN SODIUM [Concomitant]
  3. SINEMET [Concomitant]
  4. REQUIP [Concomitant]
  5. COREG [Concomitant]
  6. ENALAPRIL [Concomitant]
  7. LASIX [Concomitant]
  8. PROSCAR [Concomitant]

REACTIONS (2)
  - PALPITATIONS [None]
  - PARADOXICAL DRUG REACTION [None]
